FAERS Safety Report 24935915 (Version 1)
Quarter: 2025Q1

REPORT INFORMATION
  Report Type: Spontaneous
  Country: TH (occurrence: TH)
  Receive Date: 20250206
  Receipt Date: 20250206
  Transmission Date: 20250408
  Serious: Yes (Other)
  Sender: MYLAN
  Company Number: TH-MYLANLABS-2025M1010143

PATIENT
  Age: 87 Year
  Sex: Female

DRUGS (1)
  1. DILANTIN [Suspect]
     Active Substance: PHENYTOIN
     Indication: Product used for unknown indication
     Dosage: 100 MILLIGRAM, TID (3 TIMES A DAY)
     Route: 048
     Dates: start: 20231016, end: 20231023

REACTIONS (4)
  - Haematemesis [Recovered/Resolved]
  - Angioedema [Recovering/Resolving]
  - Rash [Recovering/Resolving]
  - Drug reaction with eosinophilia and systemic symptoms [Recovering/Resolving]

NARRATIVE: CASE EVENT DATE: 20231022
